FAERS Safety Report 7320529-6 (Version None)
Quarter: 2011Q1

REPORT INFORMATION
  Report Type: 
  Country: None (occurrence: None)
  Receive Date: 20110228
  Receipt Date: 20110217
  Transmission Date: 20110831
  Serious: Yes (Other)
  Sender: FDA-Public Use
  Company Number: CA-JNJFOC-20110206509

PATIENT
  Sex: Female

DRUGS (7)
  1. MULTI-VITAMINS [Concomitant]
  2. VITAMIN B-12 [Concomitant]
  3. REMICADE [Suspect]
     Indication: ANKYLOSING SPONDYLITIS
     Dosage: DOSE WAS 300
     Route: 042
  4. REMICADE [Suspect]
     Indication: IRRITABLE BOWEL SYNDROME
     Dosage: DOSE WAS 300
     Route: 042
  5. REMICADE [Suspect]
     Indication: CROHN'S DISEASE
     Dosage: DOSE WAS 300
     Route: 042
  6. VITAMIN D [Concomitant]
  7. CALCIUM [Concomitant]

REACTIONS (2)
  - ABORTION SPONTANEOUS [None]
  - DRUG EXPOSURE DURING PREGNANCY [None]
